FAERS Safety Report 6537977-4 (Version None)
Quarter: 2010Q1

REPORT INFORMATION
  Report Type: 
  Country: None (occurrence: None)
  Receive Date: 20100114
  Receipt Date: 20100104
  Transmission Date: 20100710
  Serious: Yes (Death)
  Sender: FDA-Public Use
  Company Number: US-PFIZER INC-2010000584

PATIENT
  Age: 37 Year
  Sex: Female

DRUGS (4)
  1. SERTRALINE HCL [Suspect]
     Route: 048
  2. ACETYLSALICYLIC ACID [Suspect]
     Route: 048
  3. VALPROIC ACID [Suspect]
     Route: 048
  4. TRAZODONE [Suspect]
     Route: 048

REACTIONS (1)
  - COMPLETED SUICIDE [None]
